FAERS Safety Report 5135703-7 (Version None)
Quarter: 2006Q4

REPORT INFORMATION
  Report Type: 
  Country: None (occurrence: None)
  Receive Date: 20061024
  Receipt Date: 20061024
  Transmission Date: 20070319
  Serious: Yes (Other)
  Sender: FDA-Public Use
  Company Number: None

PATIENT
  Sex: Female
  Weight: 81.6475 kg

DRUGS (1)
  1. OGEN [Suspect]
     Indication: HOT FLUSH
     Dosage: 1.25 MG  ONE QD  PO
     Route: 048
     Dates: start: 20050701

REACTIONS (3)
  - ASTHENIA [None]
  - HOT FLUSH [None]
  - THERAPEUTIC RESPONSE UNEXPECTED WITH DRUG SUBSTITUTION [None]
